FAERS Safety Report 20597243 (Version 1)
Quarter: 2022Q1

REPORT INFORMATION
  Report Type: Spontaneous
  Country: JP (occurrence: JP)
  Receive Date: 20220315
  Receipt Date: 20220315
  Transmission Date: 20220424
  Serious: Yes (Other)
  Sender: FDA-Public Use
  Company Number: JP-BRISTOL-MYERS SQUIBB COMPANY-BMS-2022-037819

PATIENT
  Age: 56 Year
  Sex: Male

DRUGS (1)
  1. NIVOLUMAB [Suspect]
     Active Substance: NIVOLUMAB
     Indication: Malignant melanoma stage III
     Dosage: 240 MILLIGRAM, Q2WK
     Route: 065

REACTIONS (4)
  - Lymphadenopathy [Recovering/Resolving]
  - Autoimmune haemolytic anaemia [Recovering/Resolving]
  - Arthritis [Recovering/Resolving]
  - Hepatic function abnormal [Recovering/Resolving]
